FAERS Safety Report 9501316 (Version 1)
Quarter: 2013Q1

REPORT INFORMATION
  Report Type: Spontaneous
  Country: US (occurrence: None)
  Receive Date: 20130107
  Receipt Date: 20130107
  Transmission Date: 20140127
  Serious: No
  Sender: FDA-Public Use
  Company Number: PHEH2012US017811

PATIENT
  Age: 61 Year
  Sex: Female

DRUGS (11)
  1. GILENYA (FINGOLIMOD) CAPSULE, 0.5MG [Suspect]
     Indication: MULTIPLE SCLEROSIS
     Route: 048
     Dates: start: 20120801, end: 20120911
  2. SYNTHROID (LEVOTHYROXINE SODIUM) [Concomitant]
  3. PROVIGIL (MODAFINIL) [Concomitant]
  4. CRESTOR (ROSUVASTATIN CALCIUM) [Concomitant]
  5. LEXAPRO L(ESCITALOPRAM OXALATE) [Concomitant]
  6. AMLODIPINE BESYLATE W/BENAZEPRIL (AMLODIPINE BESILATE, BENAZEPRIL) [Concomitant]
  7. CENTRUM SILVER (ASCORBIC ACID, CALCIUM, MINERALS NOS, RETINOL, TOCOPHERYL ACETATE, VITAMIN B NOS, VITAMINS NOS, ZINC) [Concomitant]
  8. CALCIUM [Concomitant]
  9. VITAMIN D (ERGOCALCIFEROL) [Concomitant]
  10. FISH OIL (FISH OIL) [Concomitant]
  11. ASPIRIN (ACETYLSALICYLIC ACID) [Concomitant]

REACTIONS (3)
  - Fatigue [None]
  - Asthenia [None]
  - Drug ineffective [None]
